FAERS Safety Report 5776051-1 (Version None)
Quarter: 2008Q2

REPORT INFORMATION
  Report Type: 
  Country: None (occurrence: None)
  Receive Date: 20080613
  Receipt Date: 20080603
  Transmission Date: 20081010
  Serious: Yes (Death)
  Sender: FDA-Public Use
  Company Number: KADN20080093

PATIENT

DRUGS (1)
  1. MORPHINE [Suspect]
     Indication: DRUG USE FOR UNKNOWN INDICATION
     Dosage: DOSES, VARIABLE ROUTES
     Dates: end: 20050101

REACTIONS (3)
  - COMPLETED SUICIDE [None]
  - MEDICATION ERROR [None]
  - SUBSTANCE ABUSE [None]
